FAERS Safety Report 12847150 (Version 1)
Quarter: 2016Q4

REPORT INFORMATION
  Report Type: Spontaneous
  Country: US (occurrence: US)
  Receive Date: 20161014
  Receipt Date: 20161014
  Transmission Date: 20170207
  Serious: Yes (Hospitalization)
  Sender: FDA-Public Use
  Company Number: US-PROCTER_AND_GAMBLE-GS16123097

PATIENT
  Age: 69 Year
  Sex: Male

DRUGS (13)
  1. VICKS NYQUIL COLD AND FLU NIGHTTIME RELIEF [Suspect]
     Active Substance: ACETAMINOPHEN\DEXTROMETHORPHAN HYDROBROMIDE\DOXYLAMINE SUCCINATE
     Indication: THROAT IRRITATION
     Dosage: UNK UNK, 2 /DAY
     Route: 048
     Dates: start: 20160307, end: 20160313
  2. TAMSULOSIN [Concomitant]
     Active Substance: TAMSULOSIN
     Indication: BENIGN PROSTATIC HYPERPLASIA
     Dosage: 0.4 MG, 1 /DAY
     Route: 048
     Dates: start: 20150611, end: 20160313
  3. GABAPENTIN. [Concomitant]
     Active Substance: GABAPENTIN
     Indication: NEUROPATHY PERIPHERAL
     Dosage: UNK
     Route: 048
     Dates: start: 2013
  4. PANTOPRAZOLE SODIUM SESQUIHYDRATE [Concomitant]
     Active Substance: PANTOPRAZOLE SODIUM
     Indication: GASTROOESOPHAGEAL REFLUX DISEASE
     Dosage: UNK
     Route: 048
     Dates: start: 2010
  5. RANEXA [Concomitant]
     Active Substance: RANOLAZINE
     Indication: ANGINA PECTORIS
     Dosage: UNK
     Route: 048
     Dates: start: 2010
  6. ZOLPIDEM TARTRATE. [Suspect]
     Active Substance: ZOLPIDEM TARTRATE
     Indication: INSOMNIA
     Dosage: 5 MG, AS NEEDED
     Route: 048
     Dates: start: 2010
  7. METOPROLOL. [Concomitant]
     Active Substance: METOPROLOL
     Indication: CARDIAC FAILURE CONGESTIVE
     Dosage: UNK
     Route: 048
     Dates: start: 2010
  8. HERBAL TEAS [Suspect]
     Active Substance: HERBALS
     Indication: DIZZINESS
     Route: 048
  9. ASA [Concomitant]
     Active Substance: ASPIRIN
     Indication: BLOOD VISCOSITY INCREASED
     Dosage: UNK
     Route: 048
     Dates: start: 2008
  10. TYLENOL [Suspect]
     Active Substance: ACETAMINOPHEN
     Indication: MYALGIA
     Dosage: 500 MG, AS NEEDED
     Route: 048
     Dates: start: 2012
  11. PF-4950616 OR PLACEBO [Concomitant]
     Indication: HYPERLIPIDAEMIA
     Dosage: UNK, EVERY 2WK
     Route: 058
     Dates: start: 20150422
  12. CRESTOR [Concomitant]
     Active Substance: ROSUVASTATIN CALCIUM
     Indication: HYPERCHOLESTEROLAEMIA
     Dosage: 20 MG, UNK
     Route: 048
     Dates: start: 20140605
  13. AMLODIPINE BESYLATE. [Concomitant]
     Active Substance: AMLODIPINE BESYLATE
     Indication: HYPERTENSION
     Dosage: UNK
     Route: 048
     Dates: start: 2010

REACTIONS (12)
  - Loss of consciousness [Recovered/Resolved]
  - Eye swelling [Unknown]
  - Facial bones fracture [Recovering/Resolving]
  - Periorbital disorder [Unknown]
  - Fall [Recovered/Resolved]
  - Contusion [Unknown]
  - Subcutaneous emphysema [Unknown]
  - Comminuted fracture [Recovered/Resolved]
  - Syncope [Recovered/Resolved]
  - Contraindicated product administered [Unknown]
  - Fracture pain [Recovering/Resolving]
  - Pain [Recovering/Resolving]

NARRATIVE: CASE EVENT DATE: 20160313
